FAERS Safety Report 9023806 (Version 1)
Quarter: 2013Q1

REPORT INFORMATION
  Report Type: Spontaneous
  Country: FR (occurrence: FR)
  Receive Date: 20130121
  Receipt Date: 20130121
  Transmission Date: 20140127
  Serious: Yes (Other)
  Sender: FDA-Public Use
  Company Number: FR-ELI_LILLY_AND_COMPANY-FR201301004581

PATIENT
  Sex: Male

DRUGS (2)
  1. CIALIS [Suspect]
     Route: 048
  2. LATANOPROST [Concomitant]
     Indication: INTRAOCULAR PRESSURE FLUCTUATION

REACTIONS (1)
  - Intraocular pressure increased [Unknown]
